FAERS Safety Report 21246813 (Version 1)
Quarter: 2022Q3

REPORT INFORMATION
  Report Type: Spontaneous
  Country: US (occurrence: US)
  Receive Date: 20220824
  Receipt Date: 20220824
  Transmission Date: 20221027
  Serious: Yes (Death, Other)
  Sender: FDA-Public Use
  Company Number: US-ORGANON-1912USA004127

PATIENT
  Sex: Female

DRUGS (1)
  1. NUVARING [Suspect]
     Active Substance: ETHINYL ESTRADIOL\ETONOGESTREL
     Indication: Contraception
     Dosage: UNK
     Route: 067
     Dates: start: 201805

REACTIONS (5)
  - Thrombosis [Fatal]
  - Pulmonary embolism [Unknown]
  - Nasopharyngitis [Unknown]
  - Pain in extremity [Unknown]
  - Muscle strain [Unknown]

NARRATIVE: CASE EVENT DATE: 20190601
